FAERS Safety Report 13929429 (Version 1)
Quarter: 2017Q3

REPORT INFORMATION
  Report Type: Spontaneous
  Country: US (occurrence: None)
  Receive Date: 20170901
  Receipt Date: 20170901
  Transmission Date: 20171127
  Serious: Yes (Hospitalization)
  Sender: FDA-Public Use
  Company Number: None

PATIENT
  Age: 56 Year
  Sex: Male
  Weight: 126.1 kg

DRUGS (1)
  1. PENICILLIN GK 24MU BAXTER [Suspect]
     Active Substance: PENICILLIN G POTASSIUM
     Indication: ENDOCARDITIS
     Dosage: 24MU CIV DAILY IV
     Route: 042
     Dates: start: 20170718, end: 20170823

REACTIONS (1)
  - Nervous system disorder [None]

NARRATIVE: CASE EVENT DATE: 20170823
